FAERS Safety Report 24687963 (Version 1)
Quarter: 2024Q4

REPORT INFORMATION
  Report Type: Spontaneous
  Country: US (occurrence: US)
  Receive Date: 20241202
  Receipt Date: 20241202
  Transmission Date: 20250115
  Serious: Yes (Other)
  Sender: SANOFI AVENTIS
  Company Number: US-SA-2024SA351740

PATIENT
  Age: 61 Year
  Sex: Female

DRUGS (1)
  1. DUPIXENT [Suspect]
     Active Substance: DUPILUMAB
     Dosage: 300 MG, QOW
     Route: 058

REACTIONS (7)
  - Anaphylactic reaction [Recovering/Resolving]
  - Headache [Recovering/Resolving]
  - Panic attack [Recovering/Resolving]
  - Throat tightness [Recovering/Resolving]
  - Toothache [Recovering/Resolving]
  - Food allergy [Recovering/Resolving]
  - Arthropod bite [Recovering/Resolving]
